FAERS Safety Report 14574148 (Version 1)
Quarter: 2018Q1

REPORT INFORMATION
  Report Type: Spontaneous
  Country: FR (occurrence: FR)
  Receive Date: 20180226
  Receipt Date: 20180226
  Transmission Date: 20180509
  Serious: Yes (Life-Threatening)
  Sender: FDA-Public Use
  Company Number: FR-MYLANLABS-2018M1012817

PATIENT
  Age: 49 Year
  Sex: Male
  Weight: 82 kg

DRUGS (6)
  1. KETAMINE RENAUDIN [Suspect]
     Active Substance: KETAMINE
     Indication: ANAESTHESIA
     Dosage: 15 MG, TOTAL
     Route: 042
     Dates: start: 20180118, end: 20180118
  2. DEXAMETHASONE MYLAN 4 MG/1 ML, SOLUTION INJECTABLE EN AMPOULE [Suspect]
     Active Substance: DEXAMETHASONE
     Indication: ANAESTHESIA
     Dosage: 8 MG, TOTAL
     Route: 042
     Dates: start: 20180118, end: 20180118
  3. SUFENTANIL MYLAN [Suspect]
     Active Substance: SUFENTANIL
     Indication: ANAESTHESIA
     Dosage: 17.5 MG, TOTAL
     Route: 042
     Dates: start: 20180118, end: 20180118
  4. DROPERIDOL AGUETTANT [Suspect]
     Active Substance: DROPERIDOL
     Indication: ANAESTHESIA
     Dosage: 1.25 MG, TOTAL
     Route: 042
     Dates: start: 20180118, end: 20180118
  5. CISATRACURIUM MYLAN 5 MG/ML, SOLUTION INJECTABLE/POUR PERFUSION [Suspect]
     Active Substance: CISATRACURIUM
     Indication: ANAESTHESIA
     Dosage: 15 MG, TOTAL
     Route: 042
     Dates: start: 20180118, end: 20180118
  6. PROPOFOL PANPHARMA [Suspect]
     Active Substance: PROPOFOL
     Indication: ANAESTHESIA
     Dosage: 200 MG, TOTAL
     Route: 042
     Dates: start: 20180118, end: 20180118

REACTIONS (1)
  - Anaphylactic shock [Recovered/Resolved]

NARRATIVE: CASE EVENT DATE: 20180118
